FAERS Safety Report 7958658-6 (Version None)
Quarter: 2011Q4

REPORT INFORMATION
  Report Type: 
  Country: None (occurrence: None)
  Receive Date: 20111206
  Receipt Date: 20111201
  Transmission Date: 20120403
  Serious: No
  Sender: FDA-Public Use
  Company Number: US-BIOGENIDEC-2011BI045861

PATIENT
  Sex: Female

DRUGS (3)
  1. TYSABRI [Suspect]
     Route: 042
     Dates: start: 20070920, end: 20090617
  2. TYSABRI [Suspect]
     Route: 042
     Dates: start: 20070116, end: 20070824
  3. TYSABRI [Suspect]
     Indication: MULTIPLE SCLEROSIS
     Route: 042
     Dates: start: 20100305, end: 20110228

REACTIONS (2)
  - MEMORY IMPAIRMENT [None]
  - GAIT DISTURBANCE [None]
